FAERS Safety Report 7919547-6 (Version None)
Quarter: 2011Q4

REPORT INFORMATION
  Report Type: 
  Country: None (occurrence: None)
  Receive Date: 20111116
  Receipt Date: 20111116
  Transmission Date: 20120403
  Serious: Yes (Hospitalization)
  Sender: FDA-Public Use
  Company Number: None

PATIENT
  Age: 55 Year
  Sex: Male
  Weight: 104.3 kg

DRUGS (7)
  1. WARFARIN SODIUM [Concomitant]
  2. METOPROLOL TARTRATE [Concomitant]
  3. METFORMIN HCL [Concomitant]
  4. LISINOPRIL [Concomitant]
  5. ADVAIR DISKUS 100/50 [Concomitant]
  6. DIGOXIN [Suspect]
     Indication: ATRIAL FIBRILLATION
     Dosage: 0.125MG DAILY PO CHRONIC
     Route: 048
  7. NASONEX [Concomitant]

REACTIONS (3)
  - HYPERTENSION [None]
  - CHEST PAIN [None]
  - CARDIOACTIVE DRUG LEVEL INCREASED [None]
